FAERS Safety Report 7535196-6 (Version None)
Quarter: 2011Q2

REPORT INFORMATION
  Report Type: 
  Country: None (occurrence: None)
  Receive Date: 20110609
  Receipt Date: 20090422
  Transmission Date: 20111010
  Serious: Yes (Hospitalization, Other)
  Sender: FDA-Public Use
  Company Number: PHHY2009JP15158

PATIENT
  Sex: Male
  Weight: 41 kg

DRUGS (9)
  1. JUVELA [Concomitant]
     Dosage: 300 MG,  PER DAY
     Route: 048
     Dates: start: 20020830
  2. VALSARTAN [Suspect]
     Indication: HYPERTENSION
     Dosage: 80 MG, QD
     Route: 048
     Dates: start: 20070910
  3. LOSARTAN POTASSIUM [Concomitant]
     Indication: HYPERTENSION
     Dosage: 50 MG,  PER DAY
     Route: 048
     Dates: end: 20070910
  4. SERMION [Concomitant]
     Dosage: 15 MG, PER DAY
     Route: 048
     Dates: start: 20020830
  5. ASPIRIN [Concomitant]
     Dosage: 100MG,  PER DAY
     Route: 048
     Dates: start: 20080324
  6. ALLOPURINOL [Concomitant]
     Dosage: 100 MG, PER DAY
     Route: 048
     Dates: start: 20040707
  7. ALFAROL [Concomitant]
     Dosage: 0.5 G, UNK
     Route: 048
     Dates: start: 20080324
  8. FOSAMAX [Concomitant]
     Dosage: 35 MG,  PER DAY
     Route: 048
     Dates: start: 20080324
  9. MARZULENE [Concomitant]
     Dosage: 2 G, UNK
     Route: 048
     Dates: start: 20020830

REACTIONS (2)
  - FRACTURE [None]
  - CEREBRAL INFARCTION [None]
